FAERS Safety Report 10175215 (Version 1)
Quarter: 2014Q2

REPORT INFORMATION
  Report Type: Spontaneous
  Country: US (occurrence: US)
  Receive Date: 20140515
  Receipt Date: 20140515
  Transmission Date: 20141212
  Serious: No
  Sender: FDA-Public Use
  Company Number: US-VIVUS-2014V1000100

PATIENT
  Sex: Male
  Weight: 80.36 kg

DRUGS (2)
  1. QSYMIA 3.75MG/23MG [Suspect]
     Indication: WEIGHT INCREASED
     Route: 048
     Dates: start: 20131106, end: 20131120
  2. QSYMIA 7.5MG/46MG [Suspect]
     Indication: WEIGHT INCREASED
     Route: 048
     Dates: start: 20131121, end: 20131206

REACTIONS (2)
  - Visual impairment [Not Recovered/Not Resolved]
  - Dizziness [Recovered/Resolved]
